FAERS Safety Report 6447220-2 (Version None)
Quarter: 2009Q4

REPORT INFORMATION
  Report Type: 
  Country: None (occurrence: None)
  Receive Date: 20091119
  Receipt Date: 20091104
  Transmission Date: 20100525
  Serious: No
  Sender: FDA-Public Use
  Company Number: DE-GENENTECH-294406

PATIENT
  Sex: Female
  Weight: 78.4 kg

DRUGS (1)
  1. MABTHERA [Suspect]
     Indication: RHEUMATOID ARTHRITIS
     Dosage: 1ST DOSE
     Route: 042
     Dates: start: 20091020

REACTIONS (6)
  - ARTHRALGIA [None]
  - C-REACTIVE PROTEIN INCREASED [None]
  - IMMUNOGLOBULINS DECREASED [None]
  - MYALGIA [None]
  - PYREXIA [None]
  - WHITE BLOOD CELL COUNT INCREASED [None]
